FAERS Safety Report 5724467-1 (Version None)
Quarter: 2008Q2

REPORT INFORMATION
  Report Type: 
  Country: None (occurrence: None)
  Receive Date: 20080429
  Receipt Date: 20080414
  Transmission Date: 20081010
  Serious: Yes (Hospitalization)
  Sender: FDA-Public Use
  Company Number: 2008BM000057

PATIENT
  Age: 14 Year
  Sex: Female
  Weight: 16 kg

DRUGS (10)
  1. NAGLAZYME [Suspect]
     Indication: MUCOPOLYSACCHARIDOSIS VI
     Dosage: 20 MG;QW;IV
     Route: 042
     Dates: start: 20020101
  2. MONTELUKAST SODIUM [Concomitant]
  3. FLUTICASONE /00972202/ [Concomitant]
  4. ALBUTEROL [Concomitant]
  5. BUDESONIDE [Concomitant]
  6. ROXITHROMYCIN [Concomitant]
  7. AUGMENTIN '125' [Concomitant]
  8. PREDNISOLONE /0016202/ [Concomitant]
  9. CIPROFLOXACIN HCL [Concomitant]
  10. PROMETHAZINE [Concomitant]

REACTIONS (15)
  - BLOOD PRESSURE DECREASED [None]
  - CHILLS [None]
  - DIZZINESS [None]
  - DRUG DOSE OMISSION [None]
  - DYSPNOEA [None]
  - EMOTIONAL DISTRESS [None]
  - INFUSION RELATED REACTION [None]
  - IRRITABILITY [None]
  - LIVEDO RETICULARIS [None]
  - MALAISE [None]
  - OXYGEN SATURATION DECREASED [None]
  - PALLOR [None]
  - RASH ERYTHEMATOUS [None]
  - RESPIRATORY RATE INCREASED [None]
  - SERRATIA INFECTION [None]
